FAERS Safety Report 10169499 (Version 1)
Quarter: 2014Q2

REPORT INFORMATION
  Report Type: Spontaneous
  Country: US (occurrence: US)
  Receive Date: 20140513
  Receipt Date: 20140513
  Transmission Date: 20141212
  Serious: Yes (Other)
  Sender: FDA-Public Use
  Company Number: US-RB-065706-14

PATIENT
  Age: 92 Year
  Sex: Female

DRUGS (2)
  1. DELSYM ADULT ORANGE [Suspect]
     Indication: PRODUCT USED FOR UNKNOWN INDICATION
     Dosage: TOOK 10ML ON 05-MAY-2014 AND ANOTHER 10ML ON THE MORNING OF 06-MAY-2014.
     Route: 048
     Dates: start: 20140505
  2. KUMADEN [Concomitant]
     Indication: PRODUCT USED FOR UNKNOWN INDICATION

REACTIONS (2)
  - Hypersomnia [Not Recovered/Not Resolved]
  - Confusional state [Not Recovered/Not Resolved]
